FAERS Safety Report 5426771-3 (Version None)
Quarter: 2007Q3

REPORT INFORMATION
  Report Type: 
  Country: None (occurrence: None)
  Receive Date: 20070731
  Receipt Date: 20070621
  Transmission Date: 20080115
  Serious: No
  Sender: FDA-Public Use
  Company Number: 2007PV032605

PATIENT
  Age: 57 Year
  Sex: Female

DRUGS (7)
  1. EXENATIDE(EXENATIDE) PEN,DISPOSABLE [Suspect]
     Indication: TYPE 2 DIABETES MELLITUS
     Dosage: 5 UG, 2/D, SUBCUTANEOUS 5 UG, 2/D
     Route: 058
     Dates: start: 20070327, end: 20070410
  2. EXENATIDE(EXENATIDE) PEN,DISPOSABLE [Suspect]
     Indication: TYPE 2 DIABETES MELLITUS
     Dosage: 5 UG, 2/D, SUBCUTANEOUS 5 UG, 2/D
     Route: 058
     Dates: start: 20070501
  3. EXENATIDE [Concomitant]
  4. GAVISCON [Concomitant]
  5. GINGER [Concomitant]
  6. METFORMIN HCL [Concomitant]
  7. EXENATIDE(EXENATIDE) PEN,DISPOSABLE [Suspect]

REACTIONS (9)
  - CONSTIPATION [None]
  - DECREASED APPETITE [None]
  - DIARRHOEA [None]
  - DISCOMFORT [None]
  - ERUCTATION [None]
  - HYPERCHLORHYDRIA [None]
  - IMPAIRED GASTRIC EMPTYING [None]
  - NAUSEA [None]
  - WEIGHT DECREASED [None]
